FAERS Safety Report 4371198-9 (Version None)
Quarter: 2004Q2

REPORT INFORMATION
  Report Type: 
  Country: None (occurrence: None)
  Receive Date: 20040604
  Receipt Date: 20040507
  Transmission Date: 20050107
  Serious: Yes (Hospitalization)
  Sender: FDA-Public Use
  Company Number: JP-GLAXOSMITHKLINE-B0332651A

PATIENT
  Age: 74 Year
  Sex: Male
  Weight: 54 kg

DRUGS (4)
  1. PAXIL [Suspect]
     Indication: BIPOLAR I DISORDER
     Dosage: 10MG PER DAY
     Route: 048
     Dates: start: 20040402, end: 20040422
  2. LIMAS [Concomitant]
     Indication: BIPOLAR I DISORDER
     Dosage: 300MG TWICE PER DAY
     Route: 048
     Dates: start: 20040402, end: 20040422
  3. NORVASC [Concomitant]
     Indication: HYPERTENSION
     Dosage: 5MG PER DAY
     Route: 048
     Dates: start: 20040402, end: 20040422
  4. LEXOTAN [Concomitant]
     Indication: BIPOLAR I DISORDER
     Dosage: 5MG PER DAY
     Route: 048
     Dates: start: 20040402, end: 20040422

REACTIONS (5)
  - BIPOLAR DISORDER [None]
  - DEPRESSED LEVEL OF CONSCIOUSNESS [None]
  - DIZZINESS [None]
  - DRUG TOXICITY [None]
  - GAIT DISTURBANCE [None]
